FAERS Safety Report 6582728-0 (Version None)
Quarter: 2010Q1

REPORT INFORMATION
  Report Type: 
  Country: None (occurrence: None)
  Receive Date: 20100212
  Receipt Date: 20100212
  Transmission Date: 20100710
  Serious: Yes (Hospitalization)
  Sender: FDA-Public Use
  Company Number: None

PATIENT
  Age: 40 Year
  Sex: Male
  Weight: 83.8 kg

DRUGS (1)
  1. IOVERSOL [Suspect]
     Indication: SURGERY
     Dosage: 75 ML EVERY DAY IV
     Route: 042
     Dates: start: 20090520, end: 20090520

REACTIONS (2)
  - DYSPHAGIA [None]
  - RESPIRATORY DEPRESSION [None]
